FAERS Safety Report 10915787 (Version 2)
Quarter: 2015Q1

REPORT INFORMATION
  Report Type: Report from Study
  Country: US (occurrence: US)
  Receive Date: 20150316
  Receipt Date: 20150318
  Transmission Date: 20150721
  Serious: Yes (Other)
  Sender: FDA-Public Use
  Company Number: US-BAYER-2015-026707

PATIENT
  Age: 72 Year
  Sex: Male

DRUGS (2)
  1. NEXAVAR [Suspect]
     Active Substance: SORAFENIB
     Indication: NASOPHARYNGEAL CANCER
     Dosage: 200 MG, BID
     Route: 048
     Dates: start: 20150211
  2. NEXAVAR [Suspect]
     Active Substance: SORAFENIB
     Indication: NASOPHARYNGEAL CANCER
     Dosage: 800 MG DAILY
     Route: 048

REACTIONS (11)
  - Aptyalism [Not Recovered/Not Resolved]
  - Product use issue [None]
  - Dry throat [None]
  - Pruritus [None]
  - Oral disorder [Not Recovered/Not Resolved]
  - Dry mouth [Not Recovered/Not Resolved]
  - Dysphagia [Not Recovered/Not Resolved]
  - Oral discomfort [Not Recovered/Not Resolved]
  - Insomnia [Not Recovered/Not Resolved]
  - Rash [Not Recovered/Not Resolved]
  - Oropharyngeal discomfort [Not Recovered/Not Resolved]

NARRATIVE: CASE EVENT DATE: 20150215
